FAERS Safety Report 5563773-0 (Version None)
Quarter: 2007Q4

REPORT INFORMATION
  Report Type: 
  Country: None (occurrence: None)
  Receive Date: 20071217
  Receipt Date: 20070809
  Transmission Date: 20080405
  Serious: No
  Sender: FDA-Public Use
  Company Number: US-ASTRAZENECA-2007UW19233

PATIENT
  Sex: Female

DRUGS (1)
  1. CRESTOR [Suspect]
     Indication: DYSLIPIDAEMIA
     Route: 048
     Dates: start: 20070701

REACTIONS (5)
  - ANXIETY [None]
  - ARTHRALGIA [None]
  - DYSPNOEA [None]
  - EYE SWELLING [None]
  - SWELLING [None]
